FAERS Safety Report 12850720 (Version 2)
Quarter: 2016Q4

REPORT INFORMATION
  Report Type: Spontaneous
  Country: US (occurrence: US)
  Receive Date: 20161014
  Receipt Date: 20161101
  Transmission Date: 20170207
  Serious: Yes (Hospitalization, Other)
  Sender: FDA-Public Use
  Company Number: US-RELYPSA-RLY2016002920

PATIENT
  Sex: Male

DRUGS (16)
  1. ACETAMINOPHEN. [Concomitant]
     Active Substance: ACETAMINOPHEN
  2. CARVEDILOL. [Concomitant]
     Active Substance: CARVEDILOL
  3. LISINOPRIL. [Concomitant]
     Active Substance: LISINOPRIL
  4. MUCINEX ALLERGY [Concomitant]
     Active Substance: FEXOFENADINE HYDROCHLORIDE
  5. KAYEXALATE [Concomitant]
     Active Substance: SODIUM POLYSTYRENE SULFONATE
  6. LORAZEPAM. [Concomitant]
     Active Substance: LORAZEPAM
  7. SODIUM [Concomitant]
     Active Substance: SODIUM
  8. BRILINTA [Concomitant]
     Active Substance: TICAGRELOR
  9. FISH OIL [Concomitant]
     Active Substance: FISH OIL
  10. LEVOTHYROXINE SODIUM. [Concomitant]
     Active Substance: LEVOTHYROXINE SODIUM
  11. ATORVASTATIN CALCIUM. [Concomitant]
     Active Substance: ATORVASTATIN CALCIUM
  12. VELTASSA [Suspect]
     Active Substance: PATIROMER
     Indication: HYPERKALAEMIA
     Dosage: 8.4 G, QD
     Route: 048
     Dates: start: 20160510
  13. LIDOCAINE. [Concomitant]
     Active Substance: LIDOCAINE
  14. PROMETHAZINE HCL [Concomitant]
     Active Substance: PROMETHAZINE HYDROCHLORIDE
  15. VITAMIN D3 [Concomitant]
     Active Substance: CHOLECALCIFEROL
  16. ASPIRIN CHILDREN [Concomitant]
     Active Substance: ASPIRIN

REACTIONS (2)
  - Hospitalisation [Unknown]
  - Dialysis [Not Recovered/Not Resolved]
